FAERS Safety Report 5248669-6 (Version None)
Quarter: 2007Q1

REPORT INFORMATION
  Report Type: 
  Country: None (occurrence: None)
  Receive Date: 20070226
  Receipt Date: 20070226
  Transmission Date: 20070707
  Serious: Yes (Other)
  Sender: FDA-Public Use
  Company Number: None

PATIENT
  Sex: Female
  Weight: 58.9676 kg

DRUGS (1)
  1. AURO, EARACHE RELIEF, EAR DROPS  BELLADONNA  6X, 12X, 30X   DEL PHARMA [Suspect]
     Indication: EAR PAIN
     Dosage: 3 DROPS   OTIC
     Route: 001
     Dates: start: 20070225, end: 20070225

REACTIONS (4)
  - DRUG HYPERSENSITIVITY [None]
  - MEDICATION ERROR [None]
  - PHARMACEUTICAL PRODUCT COMPLAINT [None]
  - URTICARIA [None]
